FAERS Safety Report 8577315-9 (Version None)
Quarter: 2012Q3

REPORT INFORMATION
  Report Type: 
  Country: None (occurrence: None)
  Receive Date: 20120807
  Receipt Date: 20120727
  Transmission Date: 20120928
  Serious: Yes (Hospitalization)
  Sender: FDA-Public Use
  Company Number: IT-ELI_LILLY_AND_COMPANY-IT201207008768

PATIENT
  Sex: Male

DRUGS (2)
  1. CISPLATIN [Concomitant]
     Indication: LUNG NEOPLASM MALIGNANT
     Dosage: 60 MG, OTHER
     Route: 042
     Dates: start: 20120319, end: 20120504
  2. GEMZAR [Suspect]
     Indication: LUNG NEOPLASM MALIGNANT
     Dosage: 2000 MG, OTHER
     Route: 042
     Dates: start: 20120319, end: 20120510

REACTIONS (4)
  - THROMBOCYTOPENIA [None]
  - SKIN EXFOLIATION [None]
  - PURPURA [None]
  - NEUTROPENIA [None]
